FAERS Safety Report 15929156 (Version 1)
Quarter: 2019Q1

REPORT INFORMATION
  Report Type: Report from Study
  Country: CA (occurrence: CA)
  Receive Date: 20190206
  Receipt Date: 20190206
  Transmission Date: 20190417
  Serious: Yes (Other)
  Sender: FDA-Public Use
  Company Number: CA-JNJFOC-20171017403

PATIENT
  Sex: Female
  Weight: 80.74 kg

DRUGS (2)
  1. REMICADE [Suspect]
     Active Substance: INFLIXIMAB
     Indication: CROHN^S DISEASE
     Dosage: STRENGTH = 100 MG
     Route: 042
     Dates: start: 2010
  2. REMICADE [Suspect]
     Active Substance: INFLIXIMAB
     Indication: CROHN^S DISEASE
     Route: 042
     Dates: start: 201710

REACTIONS (5)
  - Off label use [Unknown]
  - Intestinal resection [Unknown]
  - Product use issue [Unknown]
  - Drug level above therapeutic [Unknown]
  - Vomiting [Unknown]

NARRATIVE: CASE EVENT DATE: 2010
